FAERS Safety Report 21067406 (Version 5)
Quarter: 2022Q3

REPORT INFORMATION
  Report Type: Report from Study
  Country: US (occurrence: US)
  Receive Date: 20220712
  Receipt Date: 20220809
  Transmission Date: 20221027
  Serious: Yes (Hospitalization, Other)
  Sender: FDA-Public Use
  Company Number: US-GILEAD-2022-0589000

PATIENT
  Age: 58 Year
  Sex: Female

DRUGS (5)
  1. AMBRISENTAN [Suspect]
     Active Substance: AMBRISENTAN
     Indication: HIV infection
     Dosage: 10 MG, QD
     Route: 065
     Dates: start: 20220316
  2. AMBRISENTAN [Suspect]
     Active Substance: AMBRISENTAN
     Indication: Pulmonary hypertension
  3. VELETRI [Concomitant]
     Active Substance: EPOPROSTENOL
  4. WARFARIN [Concomitant]
     Active Substance: WARFARIN
  5. ADCIRCA [Concomitant]
     Active Substance: TADALAFIL

REACTIONS (3)
  - Thrombosis in device [Recovered/Resolved]
  - Central venous catheterisation [Recovered/Resolved]
  - Catheter site vesicles [Recovered/Resolved]

NARRATIVE: CASE EVENT DATE: 20220709
